FAERS Safety Report 18468194 (Version 1)
Quarter: 2020Q4

REPORT INFORMATION
  Report Type: Spontaneous
  Country: US (occurrence: US)
  Receive Date: 20201104
  Receipt Date: 20201104
  Transmission Date: 20210114
  Serious: No
  Sender: FDA-Public Use
  Company Number: None

PATIENT
  Age: 71 Year
  Sex: Male

DRUGS (1)
  1. INFLIXIMAB-ABDA (INFLIXIMAB-DYYB 100MG/VIL INJ, LYPHL) [Suspect]
     Active Substance: INFLIXIMAB-ABDA
     Indication: CROHN^S DISEASE
     Dates: start: 20190702, end: 20200731

REACTIONS (3)
  - Infusion related reaction [None]
  - Chest pain [None]
  - Abdominal pain [None]

NARRATIVE: CASE EVENT DATE: 20200731
